FAERS Safety Report 10072936 (Version 1)
Quarter: 2014Q2

REPORT INFORMATION
  Report Type: Spontaneous
  Country: FR (occurrence: FR)
  Receive Date: 20140411
  Receipt Date: 20140411
  Transmission Date: 20141212
  Serious: Yes (Hospitalization)
  Sender: FDA-Public Use
  Company Number: FR-ROCHE-1381593

PATIENT
  Sex: Female

DRUGS (5)
  1. XOLAIR [Suspect]
     Indication: ASTHMA
     Route: 065
  2. SYMBICORT [Concomitant]
  3. SINGULAIR [Concomitant]
  4. SPIRIVA [Concomitant]
  5. BRICANYL [Concomitant]

REACTIONS (12)
  - Asthma [Unknown]
  - Agitation [Unknown]
  - Chest pain [Unknown]
  - Middle insomnia [Unknown]
  - Headache [Unknown]
  - Depression [Unknown]
  - Mood swings [Unknown]
  - Accident [Unknown]
  - Feeling abnormal [Unknown]
  - Pyrexia [Unknown]
  - Vertigo [Unknown]
  - Dizziness [Unknown]
